FAERS Safety Report 8233266 (Version 4)
Quarter: 2015Q2

REPORT INFORMATION
  Report Type: Spontaneous
  Country: None (occurrence: FR)
  Receive Date: 20111107
  Receipt Date: 20150506
  Transmission Date: 20150821
  Serious: Yes (Other)
  Sender: FDA-Public Use
  Company Number: FR-BAXTER-2011BH034780

PATIENT
  Age: 4 Day
  Sex: Male

DRUGS (5)
  1. FACTOR VIIA, RECOMBINANT [Suspect]
     Active Substance: COAGULATION FACTOR VIIA RECOMBINANT HUMAN
     Route: 065
  2. ADVATE [Suspect]
     Active Substance: ANTIHEMOPHILIC FACTOR, HUMAN RECOMBINANT
     Indication: HAEMOPHILIA
     Route: 065
  3. FEIBA [Suspect]
     Active Substance: ANTI-INHIBITOR COAGULANT COMPLEX
     Indication: HAEMOPHILIA
     Dosage: 500 UNITS (83 U/KG)
     Route: 042
  4. FACTOR VIIA, RECOMBINANT [Suspect]
     Active Substance: COAGULATION FACTOR VIIA RECOMBINANT HUMAN
     Indication: HAEMOPHILIA
     Route: 065
  5. FACTOR VIIA, RECOMBINANT [Suspect]
     Active Substance: COAGULATION FACTOR VIIA RECOMBINANT HUMAN
     Route: 065

REACTIONS (3)
  - Factor VIII inhibition [Recovered/Resolved]
  - Haemothorax [Recovered/Resolved]
  - Drug ineffective [Recovered/Resolved]
